FAERS Safety Report 7932563-3 (Version None)
Quarter: 2011Q4

REPORT INFORMATION
  Report Type: 
  Country: None (occurrence: None)
  Receive Date: 20111122
  Receipt Date: 20111116
  Transmission Date: 20120403
  Serious: No
  Sender: FDA-Public Use
  Company Number: US-BIOGENIDEC-2011BI044127

PATIENT
  Age: 45 Year
  Sex: Male

DRUGS (1)
  1. TYSABRI [Suspect]
     Indication: MULTIPLE SCLEROSIS
     Route: 042
     Dates: start: 20110824, end: 20110920

REACTIONS (5)
  - SURGERY [None]
  - HAEMORRHOIDS [None]
  - FALL [None]
  - POLYP [None]
  - LIGAMENT RUPTURE [None]
